FAERS Safety Report 24178815 (Version 1)
Quarter: 2024Q3

REPORT INFORMATION
  Report Type: Spontaneous
  Country: CN (occurrence: CN)
  Receive Date: 20240806
  Receipt Date: 20240806
  Transmission Date: 20241017
  Serious: Yes (Life-Threatening)
  Sender: PFIZER
  Company Number: CN-PFIZER INC-PV202400100726

PATIENT
  Age: 51 Year
  Sex: Male

DRUGS (5)
  1. CYTARABINE [Suspect]
     Active Substance: CYTARABINE
     Indication: T-cell lymphoma
     Dosage: 180 MG, 2X/DAY (D3-6)
     Route: 041
     Dates: start: 20240703, end: 20240706
  2. ETOPOSIDE [Suspect]
     Active Substance: ETOPOSIDE
     Indication: T-cell lymphoma
     Dosage: 0.18 G, 2X/DAY (D2-6)
     Route: 041
     Dates: start: 20240702, end: 20240706
  3. MELPHALAN HYDROCHLORIDE [Suspect]
     Active Substance: MELPHALAN\MELPHALAN HYDROCHLORIDE
     Indication: T-cell lymphoma
     Dosage: 250 MG, 1X/DAY (D9)
     Route: 041
     Dates: start: 20240709, end: 20240709
  4. BENDAMUSTINE [Suspect]
     Active Substance: BENDAMUSTINE
     Indication: T-cell lymphoma
     Dosage: 180 MG, 1X/DAY (D1-3)
     Route: 041
     Dates: start: 20240701, end: 20240703
  5. TUCIDINOSTAT [Suspect]
     Active Substance: TUCIDINOSTAT
     Indication: T-cell lymphoma
     Dosage: 30 MG, 1X/DAY (D3)
     Route: 048
     Dates: start: 20240703, end: 20240703

REACTIONS (6)
  - Myelosuppression [Unknown]
  - Platelet count decreased [Recovering/Resolving]
  - White blood cell count decreased [Recovering/Resolving]
  - Neutrophil count decreased [Recovering/Resolving]
  - Haemoglobin decreased [Unknown]
  - Condition aggravated [Unknown]

NARRATIVE: CASE EVENT DATE: 20240714
